FAERS Safety Report 21795191 (Version 1)
Quarter: 2022Q4

REPORT INFORMATION
  Report Type: Spontaneous
  Country: US (occurrence: None)
  Receive Date: 20221228
  Receipt Date: 20221228
  Transmission Date: 20230113
  Serious: Yes (Hospitalization)
  Sender: FDA-Public Use
  Company Number: None

PATIENT
  Age: 64 Year
  Sex: Female

DRUGS (1)
  1. CAPECITABINE [Suspect]
     Active Substance: CAPECITABINE
     Dosage: 1500MG; 2000MG DAILY ORAL??DATES OF USE  12/20 - CURRENT ?
     Route: 048
     Dates: start: 20201220

REACTIONS (5)
  - Eructation [None]
  - Nausea [None]
  - Vomiting [None]
  - Dehydration [None]
  - Malaise [None]

NARRATIVE: CASE EVENT DATE: 20221226
